FAERS Safety Report 5485729-9 (Version None)
Quarter: 2007Q4

REPORT INFORMATION
  Report Type: 
  Country: None (occurrence: None)
  Receive Date: 20071015
  Receipt Date: 20071004
  Transmission Date: 20080405
  Serious: Yes (Hospitalization)
  Sender: FDA-Public Use
  Company Number: US-JNJFOC-20071001527

PATIENT
  Sex: Female
  Weight: 58.97 kg

DRUGS (6)
  1. REMICADE [Suspect]
     Route: 042
  2. REMICADE [Suspect]
     Indication: CROHN'S DISEASE
     Route: 042
  3. LASIX [Concomitant]
     Indication: FLUID RETENTION
  4. BENADRYL [Concomitant]
     Indication: PREMEDICATION
  5. CLARITIN [Concomitant]
  6. PREDNISONE [Concomitant]

REACTIONS (8)
  - ARTHRALGIA [None]
  - BLOOD POTASSIUM DECREASED [None]
  - CHEST PAIN [None]
  - HYPERSENSITIVITY [None]
  - RASH [None]
  - RESPIRATORY DISORDER [None]
  - SCAR [None]
  - URETERIC OBSTRUCTION [None]
